FAERS Safety Report 24308664 (Version 4)
Quarter: 2025Q3

REPORT INFORMATION
  Report Type: Spontaneous
  Country: JP (occurrence: JP)
  Receive Date: 20240911
  Receipt Date: 20250812
  Transmission Date: 20251020
  Serious: Yes (Life-Threatening, Hospitalization)
  Sender: EISAI
  Company Number: JP-Eisai-202405683_LEN-RCC_P_1

PATIENT
  Sex: Male

DRUGS (11)
  1. LENVIMA [Suspect]
     Active Substance: LENVATINIB
     Indication: Renal cell carcinoma
     Dates: start: 20240516, end: 20240523
  2. LENVIMA [Suspect]
     Active Substance: LENVATINIB
     Dates: start: 20240606, end: 202406
  3. LENVIMA [Suspect]
     Active Substance: LENVATINIB
     Dates: start: 20240613, end: 202407
  4. LENVIMA [Suspect]
     Active Substance: LENVATINIB
     Dates: start: 20240718, end: 20240802
  5. LENVIMA [Suspect]
     Active Substance: LENVATINIB
  6. LENVIMA [Suspect]
     Active Substance: LENVATINIB
  7. KEYTRUDA [Suspect]
     Active Substance: PEMBROLIZUMAB
     Indication: Renal cell carcinoma
     Dates: start: 20240516, end: 20240523
  8. KEYTRUDA [Suspect]
     Active Substance: PEMBROLIZUMAB
     Dates: start: 20240606
  9. KEYTRUDA [Suspect]
     Active Substance: PEMBROLIZUMAB
     Dates: start: 20240627
  10. KEYTRUDA [Suspect]
     Active Substance: PEMBROLIZUMAB
     Dates: start: 2024, end: 20240805
  11. KEYTRUDA [Suspect]
     Active Substance: PEMBROLIZUMAB
     Dates: start: 2024, end: 2024

REACTIONS (2)
  - Myocardial infarction [Unknown]
  - Physical deconditioning [Recovered/Resolved]

NARRATIVE: CASE EVENT DATE: 20240802
